FAERS Safety Report 7382424-6 (Version None)
Quarter: 2011Q1

REPORT INFORMATION
  Report Type: 
  Country: None (occurrence: None)
  Receive Date: 20110329
  Receipt Date: 20110314
  Transmission Date: 20110831
  Serious: Yes (Other)
  Sender: FDA-Public Use
  Company Number: US-BAYER-2011-022971

PATIENT
  Sex: Female

DRUGS (1)
  1. AVELOX [Suspect]
     Indication: LYME DISEASE
     Dosage: 400 MG, QD
     Route: 048
     Dates: start: 20090715

REACTIONS (6)
  - MUSCULOSKELETAL STIFFNESS [None]
  - CHEST PAIN [None]
  - LYMPHADENOPATHY [None]
  - SLEEP DISORDER [None]
  - ASTHENIA [None]
  - SYNCOPE [None]
